FAERS Safety Report 25710474 (Version 1)
Quarter: 2025Q3

REPORT INFORMATION
  Report Type: Report from Study
  Country: PH (occurrence: PH)
  Receive Date: 20250821
  Receipt Date: 20250821
  Transmission Date: 20251020
  Serious: Yes (Death)
  Sender: OTSUKA
  Company Number: PH-MMM-Otsuka-OR3ZAGY0

PATIENT

DRUGS (10)
  1. TOLVAPTAN [Suspect]
     Active Substance: TOLVAPTAN
     Indication: Blood sodium decreased
     Dosage: 0.5 DF, TIW (15MG 1/2 TABLET EVERY MWF)
     Route: 048
     Dates: start: 2022, end: 20250706
  2. TOLVAPTAN [Suspect]
     Active Substance: TOLVAPTAN
     Indication: Blood potassium decreased
  3. ARICEPT [Concomitant]
     Active Substance: DONEPEZIL HYDROCHLORIDE
     Indication: Dementia Alzheimer^s type
     Route: 065
  4. MEMANTINE [Concomitant]
     Active Substance: MEMANTINE
     Indication: Dementia Alzheimer^s type
     Route: 065
  5. SODIUM CHLORIDE [Concomitant]
     Active Substance: SODIUM CHLORIDE
     Indication: Blood sodium decreased
     Dosage: UNK UNK, TID (3 TIMES A DAY)
     Route: 065
  6. MEROPENEM [Concomitant]
     Active Substance: MEROPENEM
     Indication: Product used for unknown indication
     Route: 065
  7. MEMRY [Concomitant]
     Indication: Product used for unknown indication
     Route: 065
  8. POTASSIUM CHLORIDE [Concomitant]
     Active Substance: POTASSIUM CHLORIDE
     Indication: Product used for unknown indication
     Route: 065
  9. LOSARTAN [Concomitant]
     Active Substance: LOSARTAN
     Indication: Product used for unknown indication
     Route: 065
  10. ZYKAST [Concomitant]
     Indication: Product used for unknown indication
     Route: 065

REACTIONS (5)
  - Pneumonia [Fatal]
  - Oxygen saturation decreased [Fatal]
  - Productive cough [Fatal]
  - Product use in unapproved indication [Unknown]
  - Wrong technique in product usage process [Unknown]

NARRATIVE: CASE EVENT DATE: 20220101
